FAERS Safety Report 7554392-5 (Version None)
Quarter: 2011Q2

REPORT INFORMATION
  Report Type: 
  Country: None (occurrence: None)
  Receive Date: 20110617
  Receipt Date: 20110613
  Transmission Date: 20111010
  Serious: Yes (Hospitalization)
  Sender: FDA-Public Use
  Company Number: NL-SANOFI-AVENTIS-2011SA037267

PATIENT
  Age: 67 Year
  Sex: Male

DRUGS (5)
  1. XELODA [Suspect]
     Route: 048
     Dates: start: 20110101, end: 20110101
  2. OXALIPLATIN [Suspect]
     Route: 042
     Dates: start: 20110101
  3. XELODA [Suspect]
     Route: 048
     Dates: start: 20110101
  4. OXALIPLATIN [Suspect]
     Route: 042
     Dates: start: 20110101, end: 20110101
  5. AVASTIN [Suspect]
     Route: 042
     Dates: start: 20110101, end: 20110501

REACTIONS (2)
  - GASTROINTESTINAL PERFORATION [None]
  - PERITONITIS [None]
